FAERS Safety Report 14232280 (Version 1)
Quarter: 2017Q4

REPORT INFORMATION
  Report Type: Spontaneous
  Country: AR (occurrence: AR)
  Receive Date: 20171128
  Receipt Date: 20171128
  Transmission Date: 20180321
  Serious: Yes (Other)
  Sender: FDA-Public Use
  Company Number: AR-PFIZER INC-2017508268

PATIENT
  Age: 66 Year
  Sex: Female

DRUGS (1)
  1. SUTENT [Suspect]
     Active Substance: SUNITINIB MALATE
     Indication: METASTATIC RENAL CELL CARCINOMA
     Dosage: UNK, CYCLIC, (14 DAYS TREATMENT FOLLOWED BY 7 DAYS REST)
     Dates: start: 20171107

REACTIONS (5)
  - Tongue blistering [Unknown]
  - Oropharyngeal blistering [Unknown]
  - Mastication disorder [Unknown]
  - Glossodynia [Unknown]
  - Vomiting [Unknown]

NARRATIVE: CASE EVENT DATE: 201711
